FAERS Safety Report 9482454 (Version 2)
Quarter: 2013Q3

REPORT INFORMATION
  Report Type: Spontaneous
  Country: JP (occurrence: JP)
  Receive Date: 20130828
  Receipt Date: 20130828
  Transmission Date: 20140515
  Serious: Yes (Hospitalization)
  Sender: FDA-Public Use
  Company Number: JP-PFIZER INC-2013241593

PATIENT
  Age: 75 Year
  Sex: Female

DRUGS (3)
  1. JZOLOFT [Suspect]
     Indication: DEPRESSION
     Dosage: 25 MG/DAY
     Route: 048
  2. ABILIFY [Concomitant]
     Indication: DEPRESSION
     Dosage: 3 MG/DAY
  3. LEVOTOMIN [Concomitant]
     Dosage: UNK

REACTIONS (1)
  - Rectal ulcer [Unknown]
